FAERS Safety Report 6397238-3 (Version None)
Quarter: 2009Q4

REPORT INFORMATION
  Report Type: 
  Country: None (occurrence: None)
  Receive Date: 20091012
  Receipt Date: 20091009
  Transmission Date: 20100525
  Serious: Yes (Hospitalization)
  Sender: FDA-Public Use
  Company Number: TW-RB-021046-09

PATIENT
  Sex: Male
  Weight: 72.8 kg

DRUGS (2)
  1. SUBOXONE [Suspect]
     Route: 048
     Dates: start: 20090911, end: 20090923
  2. SILYMARIN [Concomitant]
     Route: 065
     Dates: start: 20090926

REACTIONS (3)
  - HAEMATEMESIS [None]
  - HYPOKALAEMIA [None]
  - INSOMNIA [None]
